FAERS Safety Report 9409473 (Version 1)
Quarter: 2013Q3

REPORT INFORMATION
  Report Type: Spontaneous
  Country: US (occurrence: US)
  Receive Date: 20130719
  Receipt Date: 20130719
  Transmission Date: 20140515
  Serious: Yes (Hospitalization)
  Sender: FDA-Public Use
  Company Number: US-BAYER-2013-086992

PATIENT
  Age: 46 Year
  Sex: Female

DRUGS (10)
  1. YAZ [Suspect]
  2. YASMIN [Suspect]
  3. CYTOMEL [Concomitant]
     Dosage: 5 MCG/24HR, UNK
     Dates: start: 20080313, end: 20090315
  4. SYNTHROID [Concomitant]
     Dosage: 112 MCG/24HR, UNK
     Dates: start: 20080313, end: 20081222
  5. HYDROCODONE W/ACETAMINOPHEN [Concomitant]
     Dosage: 5-500 MG 1-2 TABLETS EVERY 4-6 HOURS AS NEEDED
     Dates: start: 20080715, end: 20080806
  6. NABUMETONE [Concomitant]
     Dosage: 750 MG, Q (EVERY) 12 H (HOURS) AND P.R.N. (IAS NEEDED)
     Dates: start: 20080715, end: 20080806
  7. PROTONIX [Concomitant]
  8. FLEXERIL [Concomitant]
     Dosage: 10 MG Q 6 H P.R.N.
     Dates: start: 20080715, end: 20080806
  9. PERCOCET [Concomitant]
  10. DILAUDID [Concomitant]

REACTIONS (1)
  - Deep vein thrombosis [None]
